FAERS Safety Report 9863252 (Version 1)
Quarter: 2014Q1

REPORT INFORMATION
  Report Type: Report from Study
  Country: US (occurrence: US)
  Receive Date: 20140203
  Receipt Date: 20140203
  Transmission Date: 20141002
  Serious: Yes (Death)
  Sender: FDA-Public Use
  Company Number: US-ROCHE-1319236

PATIENT
  Sex: Female

DRUGS (5)
  1. AVASTIN [Suspect]
     Indication: OVARIAN CANCER
     Route: 065
  2. TAXOL [Concomitant]
  3. CARBOPLATIN [Concomitant]
  4. GEMZAR [Concomitant]
  5. TOPOTECAN [Concomitant]

REACTIONS (2)
  - Death [Fatal]
  - Off label use [Unknown]
